FAERS Safety Report 7806907-7 (Version None)
Quarter: 2011Q4

REPORT INFORMATION
  Report Type: 
  Country: None (occurrence: None)
  Receive Date: 20111011
  Receipt Date: 20111007
  Transmission Date: 20120403
  Serious: Yes (Other)
  Sender: FDA-Public Use
  Company Number: GXKR2011DE03000

PATIENT
  Sex: Female
  Weight: 3.33 kg

DRUGS (4)
  1. LAMOTRIGINE [Suspect]
     Dosage: MATERNAL DOSE: 2X100 MG/D
     Route: 063
  2. VALPROATE SODIUM [Suspect]
     Dosage: MATERNAL DOSE: 2X300 MG/D
     Route: 063
  3. VALPROATE SODIUM [Suspect]
     Dosage: UNK MG, UNK
     Route: 064
  4. LAMOTRIGINE [Suspect]
     Dosage: UNK MG, UNK
     Route: 064

REACTIONS (5)
  - SOMNOLENCE [None]
  - EXPOSURE DURING BREAST FEEDING [None]
  - TREMOR [None]
  - MATERNAL EXPOSURE DURING PREGNANCY [None]
  - BLOOD GLUCOSE DECREASED [None]
